FAERS Safety Report 8161376-5 (Version None)
Quarter: 2012Q1

REPORT INFORMATION
  Report Type: 
  Country: None (occurrence: None)
  Receive Date: 20120224
  Receipt Date: 20120215
  Transmission Date: 20120608
  Serious: Yes (Hospitalization)
  Sender: FDA-Public Use
  Company Number: AU-JNJFOC-20120207665

PATIENT
  Age: 72 Year
  Sex: Male

DRUGS (2)
  1. CARDIAC MEDICATIONS [Concomitant]
     Route: 065
  2. RISPERDAL [Suspect]
     Indication: DEMENTIA
     Route: 048

REACTIONS (2)
  - MIOSIS [None]
  - UNRESPONSIVE TO STIMULI [None]
